FAERS Safety Report 11968742 (Version 8)
Quarter: 2016Q4

REPORT INFORMATION
  Report Type: Spontaneous
  Country: US (occurrence: US)
  Receive Date: 20160128
  Receipt Date: 20161205
  Transmission Date: 20170206
  Serious: Yes (Death, Hospitalization, Other)
  Sender: FDA-Public Use
  Company Number: US-009507513-1601USA009201

PATIENT
  Sex: Male

DRUGS (2)
  1. KEYTRUDA [Suspect]
     Active Substance: PEMBROLIZUMAB
     Dosage: 100 MG, DAILY
     Route: 042
     Dates: start: 20151223
  2. KEYTRUDA [Suspect]
     Active Substance: PEMBROLIZUMAB
     Indication: PROSTATE CANCER
     Dosage: 100 MG, DAILY
     Route: 042
     Dates: start: 20151202

REACTIONS (3)
  - Drug ineffective for unapproved indication [Unknown]
  - Prostate cancer [Fatal]
  - Product use issue [Unknown]
